FAERS Safety Report 7068884-9 (Version None)
Quarter: 2010Q4

REPORT INFORMATION
  Report Type: 
  Country: None (occurrence: None)
  Receive Date: 20101028
  Receipt Date: 20100302
  Transmission Date: 20110411
  Serious: Yes (Other)
  Sender: FDA-Public Use
  Company Number: US-MONARCH-K201000246

PATIENT
  Age: 42 Year
  Sex: Male

DRUGS (3)
  1. SYNERCID [Suspect]
     Dosage: UNK
     Route: 042
     Dates: start: 20100101, end: 20100101
  2. DAPTOMYCIN [Suspect]
  3. ANTIDEPRESSANTS [Concomitant]

REACTIONS (2)
  - BLOOD CREATININE INCREASED [None]
  - HAEMATURIA [None]
